FAERS Safety Report 24066971 (Version 1)
Quarter: 2024Q3

REPORT INFORMATION
  Report Type: Spontaneous
  Country: US (occurrence: US)
  Receive Date: 20240709
  Receipt Date: 20240709
  Transmission Date: 20241017
  Serious: No
  Sender: CARLSBAD
  Company Number: US-CARLSBAD-2024USCTISPO00007

PATIENT
  Age: 72 Year
  Sex: Male
  Weight: 166 kg

DRUGS (1)
  1. DICLOFENAC SODIUM [Suspect]
     Active Substance: DICLOFENAC\DICLOFENAC SODIUM
     Indication: Inflammation
     Dosage: 90 TABLETS/60 TABLETS
     Route: 065
     Dates: start: 202401

REACTIONS (3)
  - Drug ineffective [Unknown]
  - Product quality issue [Unknown]
  - Product label issue [Unknown]
